FAERS Safety Report 5297424-X (Version None)
Quarter: 2007Q2

REPORT INFORMATION
  Report Type: 
  Country: None (occurrence: None)
  Receive Date: 20070416
  Receipt Date: 20070413
  Transmission Date: 20071010
  Serious: Yes (Other)
  Sender: FDA-Public Use
  Company Number: JP-BRISTOL-MYERS SQUIBB COMPANY-13742523

PATIENT
  Age: 29 Year
  Sex: Female

DRUGS (2)
  1. RANDA [Suspect]
     Indication: GASTRIC CANCER
     Route: 042
  2. S-1 [Suspect]
     Indication: GASTRIC CANCER
     Route: 048

REACTIONS (4)
  - CEREBROVASCULAR ACCIDENT [None]
  - HYPERCOAGULATION [None]
  - HYPOMAGNESAEMIA [None]
  - VASCULAR INJURY [None]
